FAERS Safety Report 20316478 (Version 1)
Quarter: 2022Q1

REPORT INFORMATION
  Report Type: Spontaneous
  Country: GB (occurrence: GB)
  Receive Date: 20220110
  Receipt Date: 20220110
  Transmission Date: 20220423
  Serious: Yes (Life-Threatening)
  Sender: FDA-Public Use
  Company Number: None

PATIENT
  Age: 16 Year
  Sex: Male
  Weight: 50 kg

DRUGS (3)
  1. PENICILLIN V POTASSIUM [Suspect]
     Active Substance: PENICILLIN V POTASSIUM
     Indication: Product used for unknown indication
     Dosage: UNK
     Route: 065
     Dates: start: 20220106
  2. MIDAZOLAM [Concomitant]
     Active Substance: MIDAZOLAM
     Indication: Ill-defined disorder
     Dosage: ADMINISTER ONE PRE FILLED SYRING AS PER PROTOCO...
     Route: 065
     Dates: start: 20210113
  3. TOPIRAMATE [Concomitant]
     Active Substance: TOPIRAMATE
     Indication: Ill-defined disorder
     Dosage: 1 TO BE TAKEN TWICE DAILY AND FOLLOW THE REDUCI...
     Route: 065
     Dates: start: 20210113

REACTIONS (1)
  - Dyspnoea [Recovered/Resolved]

NARRATIVE: CASE EVENT DATE: 20220106
